FAERS Safety Report 12914092 (Version 3)
Quarter: 2017Q1

REPORT INFORMATION
  Report Type: Spontaneous
  Country: JP (occurrence: JP)
  Receive Date: 20161105
  Receipt Date: 20170126
  Transmission Date: 20170428
  Serious: Yes (Other)
  Sender: FDA-Public Use
  Company Number: JP-ASTRAZENECA-2016SF14609

PATIENT
  Age: 78 Year
  Sex: Female
  Weight: 60 kg

DRUGS (11)
  1. MEILAX [Concomitant]
     Active Substance: ETHYL LOFLAZEPATE
     Dosage: 1.0MG UNKNOWN
     Route: 048
  2. LENDORMIN [Concomitant]
     Active Substance: BROTIZOLAM
     Dosage: 0.25MG UNKNOWN
     Route: 048
  3. TRAMAL OD [Concomitant]
     Active Substance: TRAMADOL
     Dosage: 25.0MG UNKNOWN
     Route: 048
  4. EXFORGE OD [Concomitant]
     Dosage: DOSE UNKNOWN
     Route: 048
  5. TRAMCET [Concomitant]
     Active Substance: ACETAMINOPHEN\TRAMADOL
     Dosage: 25.0MG UNKNOWN
     Route: 048
  6. CRESTOR [Concomitant]
     Active Substance: ROSUVASTATIN CALCIUM
     Route: 048
  7. METHYCOBAL [Concomitant]
     Active Substance: METHYLCOBALAMIN
     Dosage: 250.0UG UNKNOWN
     Route: 048
  8. CALONAL [Concomitant]
     Active Substance: ACETAMINOPHEN
     Dosage: 300.0MG UNKNOWN
     Route: 048
  9. SIGMART [Concomitant]
     Active Substance: NICORANDIL
     Dosage: 5.0MG UNKNOWN
     Route: 048
  10. ARIMIDEX [Suspect]
     Active Substance: ANASTROZOLE
     Indication: BREAST CANCER FEMALE
     Route: 048
     Dates: start: 20160913, end: 20160919
  11. LYRICA [Concomitant]
     Active Substance: PREGABALIN
     Dosage: DOSE UNKNOWN
     Route: 048

REACTIONS (3)
  - Oral mucosal exfoliation [Recovering/Resolving]
  - Blister [Recovering/Resolving]
  - Skin erosion [Recovering/Resolving]

NARRATIVE: CASE EVENT DATE: 20160915
